FAERS Safety Report 14019761 (Version 1)
Quarter: 2017Q3

REPORT INFORMATION
  Report Type: Spontaneous
  Country: US (occurrence: US)
  Receive Date: 20170928
  Receipt Date: 20170928
  Transmission Date: 20171128
  Serious: Yes (Hospitalization)
  Sender: FDA-Public Use
  Company Number: US-PFIZER INC-2017411237

PATIENT
  Age: 93 Year
  Sex: Female

DRUGS (1)
  1. MEDROL [Suspect]
     Active Substance: METHYLPREDNISOLONE
     Indication: SARCOIDOSIS
     Dosage: 5 MG, 3X/DAY
     Dates: start: 201704

REACTIONS (5)
  - Joint swelling [Unknown]
  - Deep vein thrombosis [Unknown]
  - Cushingoid [Unknown]
  - Pulmonary embolism [Unknown]
  - Peripheral swelling [Unknown]

NARRATIVE: CASE EVENT DATE: 2017
